FAERS Safety Report 7458676-0 (Version None)
Quarter: 2011Q2

REPORT INFORMATION
  Report Type: 
  Country: None (occurrence: None)
  Receive Date: 20110426
  Receipt Date: 20110414
  Transmission Date: 20111010
  Serious: Yes (Death)
  Sender: FDA-Public Use
  Company Number: 1000012466

PATIENT
  Age: 58 Year
  Sex: Female
  Weight: 57 kg

DRUGS (1)
  1. ESCITALOPRAM [Suspect]
     Indication: DEPRESSION
     Dosage: 10 MG (10 MG,1 IN 1 D),ORAL
     Route: 048
     Dates: start: 20070715

REACTIONS (9)
  - UTERINE MASS [None]
  - CARDIOMYOPATHY [None]
  - ARTERIOSCLEROSIS CORONARY ARTERY [None]
  - PLEURAL FIBROSIS [None]
  - PULMONARY OEDEMA [None]
  - PULMONARY CONGESTION [None]
  - ARTERIOSCLEROSIS [None]
  - BODY FAT DISORDER [None]
  - CHOLELITHIASIS [None]
